FAERS Safety Report 22113889 (Version 4)
Quarter: 2023Q2

REPORT INFORMATION
  Report Type: Spontaneous
  Country: GB (occurrence: GB)
  Receive Date: 20230320
  Receipt Date: 20230616
  Transmission Date: 20230722
  Serious: Yes (Death, Hospitalization, Other)
  Sender: FDA-Public Use
  Company Number: GB-MYLANLABS-2023M1028394

PATIENT
  Age: 62 Year
  Sex: Male

DRUGS (2)
  1. CLOZARIL [Suspect]
     Active Substance: CLOZAPINE
     Indication: Schizophrenia
     Dosage: UNK
     Route: 048
     Dates: start: 20160118
  2. CLOZARIL [Suspect]
     Active Substance: CLOZAPINE
     Dosage: UNK
     Route: 048
     Dates: start: 20230316

REACTIONS (12)
  - Death [Fatal]
  - Hospitalisation [Unknown]
  - Mesenteric artery thrombosis [Unknown]
  - Rhabdomyolysis [Unknown]
  - Accident [Unknown]
  - Activated partial thromboplastin time shortened [Unknown]
  - Red cell distribution width increased [Unknown]
  - Blood urea increased [Unknown]
  - Fall [Unknown]
  - Haemoglobin decreased [Unknown]
  - Haematocrit decreased [Unknown]
  - Mean cell haemoglobin decreased [Unknown]

NARRATIVE: CASE EVENT DATE: 20230309
